FAERS Safety Report 10157492 (Version 2)
Quarter: 2014Q2

REPORT INFORMATION
  Report Type: Spontaneous
  Country: BR (occurrence: BR)
  Receive Date: 20140507
  Receipt Date: 20140519
  Transmission Date: 20141212
  Serious: Yes (Hospitalization, Other)
  Sender: FDA-Public Use
  Company Number: BR-SA-2014SA055847

PATIENT
  Sex: Female
  Weight: 71 kg

DRUGS (10)
  1. LASIX [Suspect]
     Indication: CARDIOPULMONARY FAILURE
     Route: 065
  2. LASIX [Suspect]
     Indication: CARDIAC DISORDER
     Route: 065
  3. LASIX [Suspect]
     Indication: CARDIOPULMONARY FAILURE
     Route: 042
  4. LASIX [Suspect]
     Indication: CARDIAC DISORDER
     Route: 042
  5. LASIX [Suspect]
     Indication: CARDIOPULMONARY FAILURE
     Route: 042
  6. LASIX [Suspect]
     Indication: CARDIAC DISORDER
     Route: 042
  7. LASIX [Suspect]
     Indication: CARDIOPULMONARY FAILURE
     Dosage: ROUTE: WITH WATER
     Route: 048
  8. LASIX [Suspect]
     Indication: CARDIAC DISORDER
     Dosage: ROUTE: WITH WATER
     Route: 048
  9. AZITHROMYCIN [Concomitant]
     Dosage: 1 TABLET FOR 5 DAYS
     Route: 048
     Dates: start: 20140424
  10. CARVEDILOL [Concomitant]
     Indication: CARDIAC DISORDER
     Route: 048
     Dates: start: 201312

REACTIONS (3)
  - Investigation [Unknown]
  - Urinary retention [Recovered/Resolved]
  - Insomnia [Recovered/Resolved]
